FAERS Safety Report 10371340 (Version 2)
Quarter: 2014Q3

REPORT INFORMATION
  Report Type: Other
  Country: GB (occurrence: GB)
  Receive Date: 20140808
  Receipt Date: 20140808
  Transmission Date: 20150326
  Serious: Yes (Hospitalization)
  Sender: FDA-Public Use
  Company Number: GB-MYLAN-2014S1018001

PATIENT

DRUGS (3)
  1. ERYTHROMYCIN. [Suspect]
     Active Substance: ERYTHROMYCIN
     Indication: ARTHROPOD BITE
     Dosage: 250 MG, QID
     Dates: start: 20120717, end: 20120728
  2. CLARITHROMYCIN. [Suspect]
     Active Substance: CLARITHROMYCIN
     Indication: ARTHROPOD BITE
     Dosage: 500 MG, UNK
     Dates: start: 20120717, end: 20120728
  3. CHLORPHENIRAMINE MALEATE. [Suspect]
     Active Substance: CHLORPHENIRAMINE MALEATE
     Indication: ARTHROPOD BITE
     Dosage: 4 MG, UNK
     Dates: start: 20120719, end: 20120728

REACTIONS (9)
  - Weight decreased [Unknown]
  - Abdominal discomfort [Unknown]
  - Gastroenteritis [Not Recovered/Not Resolved]
  - Malaise [Unknown]
  - Vomiting [Not Recovered/Not Resolved]
  - Pyrexia [Unknown]
  - Diarrhoea [Not Recovered/Not Resolved]
  - Abdominal pain upper [Unknown]
  - Abdominal pain [Not Recovered/Not Resolved]

NARRATIVE: CASE EVENT DATE: 201207
